FAERS Safety Report 6937689-9 (Version None)
Quarter: 2010Q3

REPORT INFORMATION
  Report Type: 
  Country: None (occurrence: None)
  Receive Date: 20100820
  Receipt Date: 20100820
  Transmission Date: 20110219
  Serious: Yes (Other)
  Sender: FDA-Public Use
  Company Number: None

PATIENT
  Age: 58 Year
  Sex: Female
  Weight: 63.5036 kg

DRUGS (1)
  1. ARIMIDEX [Suspect]
     Indication: BREAST CANCER
     Dosage: 1 TAB PER DAY PO
     Route: 048
     Dates: start: 20100220, end: 20100720

REACTIONS (4)
  - BONE PAIN [None]
  - HYPOAESTHESIA [None]
  - JOINT SWELLING [None]
  - NO THERAPEUTIC RESPONSE [None]
